FAERS Safety Report 5193173-7 (Version None)
Quarter: 2006Q4

REPORT INFORMATION
  Report Type: 
  Country: None (occurrence: None)
  Receive Date: 20061228
  Receipt Date: 20060615
  Transmission Date: 20070319
  Serious: No
  Sender: FDA-Public Use
  Company Number: US-GLAXOSMITHKLINE-A0609489A

PATIENT
  Age: 46 Year
  Sex: Male

DRUGS (3)
  1. AVODART [Suspect]
     Indication: BENIGN PROSTATIC HYPERPLASIA
     Dosage: .5MG PER DAY
     Route: 048
     Dates: start: 20060501, end: 20060506
  2. RHINOCORT [Concomitant]
  3. ALLEGRA [Concomitant]

REACTIONS (3)
  - ERYTHEMA [None]
  - RASH [None]
  - SWELLING FACE [None]
